FAERS Safety Report 6158753-0 (Version None)
Quarter: 2009Q2

REPORT INFORMATION
  Report Type: 
  Country: None (occurrence: None)
  Receive Date: 20090417
  Receipt Date: 20090408
  Transmission Date: 20091009
  Serious: Yes (Hospitalization)
  Sender: FDA-Public Use
  Company Number: B0560160A

PATIENT
  Sex: Male

DRUGS (6)
  1. SERETIDE DISKUS [Suspect]
     Indication: DRUG USE FOR UNKNOWN INDICATION
     Route: 055
  2. ZYPREXA [Concomitant]
     Dosage: 10MG AT NIGHT
     Route: 048
  3. TERCIAN [Concomitant]
     Route: 048
  4. PROZAC [Concomitant]
     Dosage: 20MG IN THE MORNING
     Route: 048
  5. SERESTA [Concomitant]
     Dosage: 50MG THREE TIMES PER DAY
     Route: 048
  6. MOGADON [Concomitant]
     Dosage: 5MG AT NIGHT
     Route: 048

REACTIONS (9)
  - ANXIETY [None]
  - DEPRESSION [None]
  - DRUG INTERACTION [None]
  - EUPHORIC MOOD [None]
  - FATIGUE [None]
  - INSOMNIA [None]
  - MALAISE [None]
  - PANIC ATTACK [None]
  - WEIGHT DECREASED [None]
